FAERS Safety Report 12495145 (Version 4)
Quarter: 2016Q3

REPORT INFORMATION
  Report Type: Report from Study
  Country: CO (occurrence: CO)
  Receive Date: 20160624
  Receipt Date: 20160912
  Transmission Date: 20161109
  Serious: Yes (Death, Life-Threatening, Hospitalization)
  Sender: FDA-Public Use
  Company Number: PHHY2016CO072632

PATIENT
  Age: 87 Year
  Sex: Male
  Weight: 41 kg

DRUGS (4)
  1. REVOLADE [Suspect]
     Active Substance: ELTROMBOPAG
     Indication: IMMUNE THROMBOCYTOPENIC PURPURA
     Dosage: 50 MG, QD
     Route: 048
     Dates: start: 20150915
  2. LEVOMEPROMAZINE [Concomitant]
     Active Substance: LEVOMEPROMAZINE
     Indication: PRODUCT USED FOR UNKNOWN INDICATION
     Route: 065
  3. QUETIAPINE. [Concomitant]
     Active Substance: QUETIAPINE
     Indication: PRODUCT USED FOR UNKNOWN INDICATION
     Dosage: 400 MG, UNK
     Route: 065
  4. RIVASTIGMINE. [Concomitant]
     Active Substance: RIVASTIGMINE
     Indication: PRODUCT USED FOR UNKNOWN INDICATION
     Route: 065

REACTIONS (14)
  - Rib fracture [Unknown]
  - Clavicle fracture [Unknown]
  - Urinary tract infection [Unknown]
  - Weight decreased [Unknown]
  - Death [Fatal]
  - Platelet count decreased [Unknown]
  - Platelet count abnormal [Unknown]
  - Pulmonary haemorrhage [Unknown]
  - Haemorrhage urinary tract [Unknown]
  - Asthenia [Unknown]
  - Blood potassium decreased [Unknown]
  - Dehydration [Unknown]
  - Fall [Unknown]
  - Drug ineffective [Unknown]

NARRATIVE: CASE EVENT DATE: 20160511
